FAERS Safety Report 6463911-1 (Version None)
Quarter: 2009Q4

REPORT INFORMATION
  Report Type: 
  Country: None (occurrence: None)
  Receive Date: 20091201
  Receipt Date: 20091130
  Transmission Date: 20100525
  Serious: No
  Sender: FDA-Public Use
  Company Number: US-BAYER-200917577NA

PATIENT

DRUGS (3)
  1. MAGNEVIST [Suspect]
     Indication: DRUG USE FOR UNKNOWN INDICATION
  2. MAGNEVIST [Suspect]
  3. MAGNEVIST [Suspect]

REACTIONS (1)
  - ERYTHEMA [None]
